FAERS Safety Report 15192339 (Version 1)
Quarter: 2018Q3

REPORT INFORMATION
  Report Type: Spontaneous
  Country: US (occurrence: US)
  Receive Date: 20180724
  Receipt Date: 20180724
  Transmission Date: 20181010
  Serious: No
  Sender: FDA-Public Use
  Company Number: US-BAUSCH-BL-2018-007098

PATIENT
  Age: 82 Year
  Sex: Female

DRUGS (4)
  1. ISTALOL [Suspect]
     Active Substance: TIMOLOL MALEATE
     Indication: GLAUCOMA
     Route: 047
  2. ISTALOL [Suspect]
     Active Substance: TIMOLOL MALEATE
     Route: 047
     Dates: start: 20180313
  3. ISTALOL [Suspect]
     Active Substance: TIMOLOL MALEATE
     Route: 047
     Dates: start: 20180301, end: 20180302
  4. XALATAN [Concomitant]
     Active Substance: LATANOPROST
     Indication: PRODUCT USED FOR UNKNOWN INDICATION
     Route: 047

REACTIONS (3)
  - Instillation site pain [Recovered/Resolved]
  - Drug ineffective [Unknown]
  - Drug dose omission [Recovered/Resolved]

NARRATIVE: CASE EVENT DATE: 201803
